FAERS Safety Report 6962957-4 (Version None)
Quarter: 2010Q3

REPORT INFORMATION
  Report Type: 
  Country: None (occurrence: None)
  Receive Date: 20100902
  Receipt Date: 20100827
  Transmission Date: 20110219
  Serious: Yes (Death, Life-Threatening, Hospitalization, Disabling)
  Sender: FDA-Public Use
  Company Number: US-ROCHE-688742

PATIENT
  Sex: Male
  Weight: 80 kg

DRUGS (5)
  1. TRASTUZUMAB [Suspect]
     Indication: BREAST CANCER
     Dosage: 8 MG/KG, SINGLE
     Route: 042
     Dates: start: 20100111
  2. TRASTUZUMAB-MCC-DM1 [Suspect]
     Dosage: 281.5 MG, UNK
     Route: 042
     Dates: start: 20090319
  3. TRASTUZUMAB [Suspect]
     Dosage: UNK
     Route: 065
     Dates: start: 20060101, end: 20060101
  4. TRASTUZUMAB [Suspect]
     Dosage: UNK
     Route: 065
     Dates: start: 20060101, end: 20070101
  5. ABRAXANE [Suspect]
     Dosage: 260 MG/M2, SINGLE
     Route: 042
     Dates: start: 20100111

REACTIONS (1)
  - INTERSTITIAL LUNG DISEASE [None]
